FAERS Safety Report 15696318 (Version 1)
Quarter: 2018Q4

REPORT INFORMATION
  Report Type: Spontaneous
  Country: US (occurrence: US)
  Receive Date: 20181206
  Receipt Date: 20181206
  Transmission Date: 20190205
  Serious: Yes (Other)
  Sender: FDA-Public Use
  Company Number: US-GLAXOSMITHKLINE-US2018219025

PATIENT
  Sex: Male

DRUGS (1)
  1. SENSODYNE REPAIR AND PROTECT EXTRA FRESH [Suspect]
     Active Substance: STANNOUS FLUORIDE
     Indication: PRODUCT USED FOR UNKNOWN INDICATION
     Dosage: UNK UNK, BID
     Dates: start: 20181129

REACTIONS (3)
  - Pharyngeal abscess [Unknown]
  - Mouth swelling [Unknown]
  - Abscess oral [Unknown]
